FAERS Safety Report 25369776 (Version 2)
Quarter: 2025Q3

REPORT INFORMATION
  Report Type: Spontaneous
  Country: EU (occurrence: EU)
  Receive Date: 20250528
  Receipt Date: 20250809
  Transmission Date: 20251021
  Serious: Yes (Hospitalization, Other)
  Sender: ALEXION PHARMACEUTICALS
  Company Number: EU-SANOFI-02435631

PATIENT
  Age: 4 Month
  Sex: Male
  Weight: 5.08 kg

DRUGS (1)
  1. NIRSEVIMAB [Suspect]
     Active Substance: NIRSEVIMAB
     Route: 065
     Dates: start: 20241106, end: 20241106

REACTIONS (6)
  - Respiratory syncytial virus bronchiolitis [Unknown]
  - Dyspnoea [Unknown]
  - Hypoxia [Unknown]
  - Fluid intake reduced [Unknown]
  - Respiratory failure [Unknown]
  - Drug ineffective [Unknown]

NARRATIVE: CASE EVENT DATE: 20250201
